FAERS Safety Report 22674838 (Version 7)
Quarter: 2024Q1

REPORT INFORMATION
  Report Type: Spontaneous
  Country: US (occurrence: US)
  Receive Date: 20230705
  Receipt Date: 20240102
  Transmission Date: 20240410
  Serious: Yes (Other)
  Sender: FDA-Public Use
  Company Number: US-BRISTOL-MYERS SQUIBB COMPANY-2023-091323

PATIENT
  Age: 74 Year
  Sex: Male

DRUGS (3)
  1. LENALIDOMIDE [Suspect]
     Active Substance: LENALIDOMIDE
     Indication: Plasma cell myeloma
     Dosage: TAKE 1 CAPSULE BY MOUTH EVERY DAY FOR 14 DAYS FOLLOWED BY 7 DAYS OFF. SWALLOW WHOLE, DO NOT BREAK OR
     Route: 048
     Dates: start: 20230120
  2. LENALIDOMIDE [Suspect]
     Active Substance: LENALIDOMIDE
     Dosage: TAKE 1 CAPSULE BY MOUTH EVERY DAY FOR 14 DAYS FOLLOWED BY 7 DAYS OFF. SWALLOW WHOLE, DO NOT BREAK OR
     Route: 048
     Dates: start: 20230130
  3. LENALIDOMIDE [Suspect]
     Active Substance: LENALIDOMIDE
     Dosage: TAKE 1 WHOLE CAPSULE BY MOUTH ON DAYS 1-21 W/ OR W/O FOOD
     Route: 048

REACTIONS (8)
  - Temporomandibular joint syndrome [Not Recovered/Not Resolved]
  - Off label use [Unknown]
  - Dysgeusia [Recovering/Resolving]
  - Laboratory test abnormal [Unknown]
  - Gastrointestinal disorder [Unknown]
  - Weight decreased [Not Recovered/Not Resolved]
  - Malaise [Unknown]
  - Hypophagia [Not Recovered/Not Resolved]
